FAERS Safety Report 13791696 (Version 3)
Quarter: 2017Q4

REPORT INFORMATION
  Report Type: Spontaneous
  Country: US (occurrence: US)
  Receive Date: 20170725
  Receipt Date: 20171023
  Transmission Date: 20180320
  Serious: Yes (Hospitalization, Other)
  Sender: FDA-Public Use
  Company Number: US-009507513-1707USA005304

PATIENT
  Age: 76 Year
  Sex: Male

DRUGS (9)
  1. ASPIRIN. [Concomitant]
     Active Substance: ASPIRIN
     Indication: MYOCARDIAL INFARCTION
     Dosage: TAKE 81 MG BY MOUTH ONCE DAILY
     Route: 048
  2. TICE BCG [Suspect]
     Active Substance: BACILLUS CALMETTE-GUERIN SUBSTRAIN TICE LIVE ANTIGEN
     Dosage: UNK
     Route: 043
     Dates: start: 20170727, end: 201707
  3. ALDACTONE [Concomitant]
     Active Substance: SPIRONOLACTONE
     Indication: HYPERTENSION
  4. LYRICA [Concomitant]
     Active Substance: PREGABALIN
     Indication: PAIN IN EXTREMITY
     Dosage: TAKE 1 CAPSULE BY MOUTH TWICE DAILY
     Route: 048
  5. PROVENTIL [Concomitant]
     Active Substance: ALBUTEROL
     Indication: CHRONIC OBSTRUCTIVE PULMONARY DISEASE
     Dosage: TAKE 2 TABLETS BY MOUTH TWICE DAILY. NORMAL, DISP-360 TABLET, R-3
     Route: 048
  6. LYRICA [Concomitant]
     Active Substance: PREGABALIN
     Indication: SPINAL OSTEOARTHRITIS
  7. TICE BCG [Suspect]
     Active Substance: BACILLUS CALMETTE-GUERIN SUBSTRAIN TICE LIVE ANTIGEN
     Indication: BLADDER CANCER
     Dosage: UNK
     Dates: start: 20170707
  8. SOTALOL. [Concomitant]
     Active Substance: SOTALOL
     Indication: ATRIAL FIBRILLATION
     Dosage: TAKE 1 TABLET BY MOUTH EVERY 12 HOURS
     Route: 048
  9. VENTOLIN [Concomitant]
     Active Substance: ALBUTEROL SULFATE
     Indication: CHRONIC OBSTRUCTIVE PULMONARY DISEASE
     Dosage: 2 TABLETS TWICE DAILY
     Route: 048

REACTIONS (8)
  - Immunodeficiency [Unknown]
  - Respiratory failure [Recovering/Resolving]
  - Sepsis [Unknown]
  - Pneumonia [Unknown]
  - Renal impairment [Unknown]
  - Asthenia [Recovering/Resolving]
  - Chronic obstructive pulmonary disease [Unknown]
  - Micturition urgency [Unknown]

NARRATIVE: CASE EVENT DATE: 201707
